FAERS Safety Report 15012402 (Version 1)
Quarter: 2018Q2

REPORT INFORMATION
  Report Type: Spontaneous
  Country: US (occurrence: US)
  Receive Date: 20180530
  Receipt Date: 20180530
  Transmission Date: 20180711
  Serious: Yes (Other)
  Sender: FDA-Public Use
  Company Number: None

PATIENT
  Age: 71 Year
  Sex: Male
  Weight: 94.5 kg

DRUGS (13)
  1. PEPCID [Concomitant]
     Active Substance: FAMOTIDINE
  2. TAURINE-L-ARGININE [Concomitant]
  3. LIPITOR [Concomitant]
     Active Substance: ATORVASTATIN CALCIUM
  4. MULTI-VITAMIN [Concomitant]
     Active Substance: .ALPHA.-TOCOPHEROL ACETATE, DL-\ASCORBIC ACID\CYANOCOBALAMIN\FLUORIDE ION\FOLIC ACID\NIACIN\PYRIDOXINE\RIBOFLAVIN\THIAMINE\VITAMIN A\VITAMIN D
  5. CQ10 [Concomitant]
     Active Substance: UBIDECARENONE
  6. DOTAREM [Suspect]
     Active Substance: GADOTERATE MEGLUMINE
     Indication: NUCLEAR MAGNETIC RESONANCE IMAGING
     Dates: start: 20180416
  7. DILTIAZEM. [Concomitant]
     Active Substance: DILTIAZEM
  8. AMOXICILLIN. [Concomitant]
     Active Substance: AMOXICILLIN
  9. CAL-MAGNESIUM [Concomitant]
  10. BIOTIN [Concomitant]
     Active Substance: BIOTIN
  11. GABIPENTIN [Concomitant]
  12. ALLOPURINOL. [Concomitant]
     Active Substance: ALLOPURINOL
  13. ALLERGY MEDICATION [Concomitant]
     Active Substance: DIPHENHYDRAMINE HYDROCHLORIDE

REACTIONS (8)
  - Gastrooesophageal reflux disease [None]
  - Back pain [None]
  - Nausea [None]
  - Pain in extremity [None]
  - Hypoaesthesia [None]
  - Muscular weakness [None]
  - Musculoskeletal stiffness [None]
  - Dizziness [None]

NARRATIVE: CASE EVENT DATE: 20180416
